FAERS Safety Report 18956867 (Version 2)
Quarter: 2022Q3

REPORT INFORMATION
  Report Type: Spontaneous
  Country: US (occurrence: US)
  Receive Date: 20210302
  Receipt Date: 20220725
  Transmission Date: 20221027
  Serious: Yes (Other)
  Sender: FDA-Public Use
  Company Number: US-SUN PHARMACEUTICAL INDUSTRIES LTD-2021R1-282698

PATIENT
  Sex: Male
  Weight: 2.4 kg

DRUGS (11)
  1. BACLOFEN [Suspect]
     Active Substance: BACLOFEN
     Indication: Muscle spasticity
     Dosage: UNK
     Route: 064
  2. BACLOFEN [Suspect]
     Active Substance: BACLOFEN
     Dosage: 0.125 MG/KG/DOSE EVERY 6 HOURS BEGINNING SEVERAL HOURS AFTER BIRTH
     Route: 015
  3. BACLOFEN [Suspect]
     Active Substance: BACLOFEN
     Dosage: 0.125 MG/KG/DOSE EVERY EIGHT HOURS ON DAYS 5-7 OF LIFE
     Route: 015
  4. BACLOFEN [Suspect]
     Active Substance: BACLOFEN
     Dosage: 0.125 MG/KG/DOSE EVERY TWELVEHOURS ON DAYS 8-10 OF LIFE
     Route: 015
  5. BACLOFEN [Suspect]
     Active Substance: BACLOFEN
     Dosage: 0.125 MG/KG/DOSE DAILY ON DAYS 11-13 OF LIFE
     Route: 015
  6. BACLOFEN [Suspect]
     Active Substance: BACLOFEN
     Dosage: 30 MILLIGRAM FOUR TIMES DAILY
     Route: 064
  7. BUPROPION [Suspect]
     Active Substance: BUPROPION
     Indication: Product used for unknown indication
     Dosage: 300 MILLIGRAM, DAILY
     Route: 064
  8. DIAZEPAM [Suspect]
     Active Substance: DIAZEPAM
     Indication: Muscle spasticity
     Dosage: 2.5 MILLIGRAM, DAILY
     Route: 064
  9. OXYBUTYNIN [Suspect]
     Active Substance: OXYBUTYNIN
     Indication: Product used for unknown indication
     Dosage: 5 MILLIGRAM, DAILY
     Route: 064
  10. ESCITALOPRAM [Suspect]
     Active Substance: ESCITALOPRAM OXALATE
     Indication: Product used for unknown indication
     Dosage: 10 MILLIGRAM, DAILY
     Route: 064
  11. MIDODRINE [Suspect]
     Active Substance: MIDODRINE
     Indication: Product used for unknown indication
     Dosage: 5 MILLIGRAM, DAILY
     Route: 064

REACTIONS (5)
  - Foetal exposure during pregnancy [Unknown]
  - Posturing [Recovering/Resolving]
  - Drug withdrawal syndrome neonatal [Unknown]
  - Premature baby [Unknown]
  - Low birth weight baby [Unknown]
